FAERS Safety Report 21433903 (Version 1)
Quarter: 2022Q4

REPORT INFORMATION
  Report Type: Spontaneous
  Country: US (occurrence: US)
  Receive Date: 20221010
  Receipt Date: 20221010
  Transmission Date: 20230112
  Serious: No
  Sender: FDA-Public Use
  Company Number: US-BIOGEN-2022BI01160468

PATIENT
  Sex: Female

DRUGS (3)
  1. TECFIDERA [Suspect]
     Active Substance: DIMETHYL FUMARATE
     Indication: Multiple sclerosis
     Route: 050
  2. TELMISARTAN [Concomitant]
     Active Substance: TELMISARTAN
     Route: 050
  3. AMLODIPINE BESYLATE [Concomitant]
     Active Substance: AMLODIPINE BESYLATE
     Route: 050

REACTIONS (5)
  - Weight decreased [Unknown]
  - Hiatus hernia [Unknown]
  - Irritable bowel syndrome [Unknown]
  - Oesophageal ulcer [Unknown]
  - Dysphagia [Unknown]
